FAERS Safety Report 18958910 (Version 3)
Quarter: 2021Q3

REPORT INFORMATION
  Report Type: Spontaneous
  Country: DE (occurrence: DE)
  Receive Date: 20210302
  Receipt Date: 20210729
  Transmission Date: 20211014
  Serious: Yes (Life-Threatening, Hospitalization, Other)
  Sender: FDA-Public Use
  Company Number: DE-TORRENT-00019713

PATIENT
  Age: 87 Year
  Sex: Female

DRUGS (2)
  1. METFORMIN [Suspect]
     Active Substance: METFORMIN HYDROCHLORIDE
     Indication: TYPE 2 DIABETES MELLITUS
     Dosage: 1000 MG  1?0?1
     Route: 048
     Dates: start: 2016, end: 20210208
  2. METAMIZOL [Concomitant]
     Active Substance: METAMIZOLE SODIUM
     Indication: HUMERUS FRACTURE
     Dates: start: 202102

REACTIONS (5)
  - Hyperglycaemia [Unknown]
  - Diabetes mellitus inadequate control [Unknown]
  - Lactic acidosis [Recovering/Resolving]
  - Dehydration [Unknown]
  - Acute kidney injury [Unknown]

NARRATIVE: CASE EVENT DATE: 202102
